FAERS Safety Report 8338394-7 (Version None)
Quarter: 2012Q2

REPORT INFORMATION
  Report Type: 
  Country: None (occurrence: None)
  Receive Date: 20120504
  Receipt Date: 20120425
  Transmission Date: 20120825
  Serious: Yes (Other)
  Sender: FDA-Public Use
  Company Number: US-ASTRAZENECA-2012SE27390

PATIENT
  Age: 67 Year
  Sex: Male

DRUGS (1)
  1. CRESTOR [Suspect]
     Route: 048

REACTIONS (6)
  - COLON INJURY [None]
  - CATARACT [None]
  - GAIT DISTURBANCE [None]
  - HYPOAESTHESIA [None]
  - RETINAL TEAR [None]
  - NEPHROLITHIASIS [None]
